FAERS Safety Report 26148987 (Version 2)
Quarter: 2025Q4

REPORT INFORMATION
  Report Type: Spontaneous
  Country: CN (occurrence: CN)
  Receive Date: 20251212
  Receipt Date: 20251221
  Transmission Date: 20260118
  Serious: Yes (Life-Threatening, Hospitalization)
  Sender: DAIICHI
  Company Number: CN-DSJP-DS-2025-182968-CN

PATIENT
  Age: 63 Year
  Sex: Female
  Weight: 50 kg

DRUGS (2)
  1. ENHERTU [Suspect]
     Active Substance: FAM-TRASTUZUMAB DERUXTECAN-NXKI
     Indication: Breast cancer
     Dosage: 270 MG, QD
     Route: 041
     Dates: start: 20251028, end: 20251028
  2. DEXTROSE [Concomitant]
     Active Substance: DEXTROSE MONOHYDRATE
     Indication: Vehicle solution use
     Dosage: 100 ML, QD
     Route: 041
     Dates: start: 20251028, end: 20251028

REACTIONS (5)
  - White blood cell count decreased [Recovered/Resolved]
  - Neutrophil count decreased [Recovered/Resolved]
  - Platelet count decreased [Recovered/Resolved]
  - Chest discomfort [Recovered/Resolved]
  - Dyspnoea [Recovered/Resolved]

NARRATIVE: CASE EVENT DATE: 20251107
